FAERS Safety Report 17173315 (Version 4)
Quarter: 2020Q4

REPORT INFORMATION
  Report Type: Report from Study
  Country: FR (occurrence: FR)
  Receive Date: 20191219
  Receipt Date: 20201130
  Transmission Date: 20210113
  Serious: Yes (Death, Life-Threatening, Hospitalization, Other)
  Sender: FDA-Public Use
  Company Number: FR-ADIENNEP-2019AD000664

PATIENT
  Age: 19 Year
  Sex: Female
  Weight: 46 kg

DRUGS (13)
  1. INOTUZUMAB OZOGAMICIN [Suspect]
     Active Substance: INOTUZUMAB OZOGAMICIN
     Indication: ACUTE LYMPHOCYTIC LEUKAEMIA
     Dosage: 0.5 MG/M2, CYCLE 1
     Route: 042
     Dates: start: 20180910
  2. BUSULFAN. [Suspect]
     Active Substance: BUSULFAN
     Indication: BONE MARROW CONDITIONING REGIMEN
     Route: 042
     Dates: start: 20181020, end: 20181022
  3. INOTUZUMAB OZOGAMICIN [Suspect]
     Active Substance: INOTUZUMAB OZOGAMICIN
     Indication: ACUTE LYMPHOCYTIC LEUKAEMIA
     Dosage: 0.5 MG/M2, CYCLE 2
     Route: 042
     Dates: start: 20180917
  4. INOTUZUMAB OZOGAMICIN [Suspect]
     Active Substance: INOTUZUMAB OZOGAMICIN
     Indication: ACUTE LYMPHOCYTIC LEUKAEMIA
     Dosage: 0.5 MG/M2, CYCLE 2
     Route: 042
     Dates: start: 20181001
  5. FLUDARABINE [Concomitant]
     Active Substance: FLUDARABINE PHOSPHATE
     Indication: BONE MARROW CONDITIONING REGIMEN
  6. THIOTEPA. [Suspect]
     Active Substance: THIOTEPA
     Indication: PRODUCT USED FOR UNKNOWN INDICATION
     Dosage: 5 MG/KG DAILY
     Route: 042
     Dates: start: 20181012, end: 20181019
  7. INOTUZUMAB OZOGAMICIN [Suspect]
     Active Substance: INOTUZUMAB OZOGAMICIN
     Indication: ACUTE LYMPHOCYTIC LEUKAEMIA
     Dosage: 0.5 MG/M2, CYCLE 1
     Route: 042
     Dates: start: 20180827
  8. ENDOXAN [Suspect]
     Active Substance: CYCLOPHOSPHAMIDE
     Indication: PRODUCT USED FOR UNKNOWN INDICATION
     Dosage: 5 MG/KG, UNK
     Route: 042
     Dates: start: 20181028, end: 20181029
  9. URSODEOXYCHOLIC ACID [Concomitant]
     Active Substance: URSODIOL
     Indication: PROPHYLAXIS
  10. INOTUZUMAB OZOGAMICIN [Suspect]
     Active Substance: INOTUZUMAB OZOGAMICIN
     Indication: ACUTE LYMPHOCYTIC LEUKAEMIA
     Dosage: 0.5 MG/M2, CYCLE 2
     Route: 042
     Dates: start: 20180924
  11. INOTUZUMAB OZOGAMICIN [Suspect]
     Active Substance: INOTUZUMAB OZOGAMICIN
     Indication: ACUTE LYMPHOCYTIC LEUKAEMIA
     Dosage: 0.5 MG/M2, CYCLE 1
     Route: 042
     Dates: start: 20180903
  12. DEFITELIO [Suspect]
     Active Substance: DEFIBROTIDE SODIUM
     Indication: PROPHYLAXIS
     Dosage: 25 MG/KG DAILY
     Route: 042
     Dates: start: 20181018, end: 20181201
  13. DEFITELIO [Suspect]
     Active Substance: DEFIBROTIDE SODIUM
     Indication: VENOOCCLUSIVE DISEASE
     Dosage: ()
     Route: 042

REACTIONS (10)
  - Shock haemorrhagic [Fatal]
  - Acute respiratory distress syndrome [Fatal]
  - Enterocolitis [Fatal]
  - Enterobacter infection [Not Recovered/Not Resolved]
  - Hepatic failure [Not Recovered/Not Resolved]
  - Intentional product use issue [Unknown]
  - Hepatorenal syndrome [Fatal]
  - Lung disorder [Fatal]
  - Venoocclusive disease [Fatal]
  - Graft complication [Fatal]

NARRATIVE: CASE EVENT DATE: 20181018
